FAERS Safety Report 6271426-9 (Version None)
Quarter: 2009Q3

REPORT INFORMATION
  Report Type: 
  Country: None (occurrence: None)
  Receive Date: 20090715
  Receipt Date: 20090715
  Transmission Date: 20100115
  Serious: Yes (Hospitalization)
  Sender: FDA-Public Use
  Company Number: None

PATIENT
  Age: 75 Year
  Sex: Female
  Weight: 69.4 kg

DRUGS (3)
  1. CETUXIMAB 250 MG/  M 2 WEEKLY IV [Suspect]
     Indication: ADENOCARCINOMA
     Dosage: 250 MG/M^2  WEEKLY IV
     Route: 042
     Dates: start: 20090630
  2. OXALIPLATIN [Suspect]
     Dosage: 65 MG/M^2 EVERY OTHER WEEK IV
     Route: 042
     Dates: start: 20090706
  3. FLUOROURACIL [Concomitant]

REACTIONS (1)
  - INTESTINAL OBSTRUCTION [None]
